FAERS Safety Report 8615855-4 (Version None)
Quarter: 2012Q3

REPORT INFORMATION
  Report Type: 
  Country: None (occurrence: None)
  Receive Date: 20120823
  Receipt Date: 20120810
  Transmission Date: 20120928
  Serious: Yes (Other)
  Sender: FDA-Public Use
  Company Number: BR-ROCHE-1100928

PATIENT
  Sex: Female
  Weight: 60 kg

DRUGS (3)
  1. AMIODARONE HYDROCHLORIDE [Concomitant]
  2. VALIUM [Suspect]
     Indication: FIBROMYALGIA
     Route: 048
  3. NAPRIX [Concomitant]

REACTIONS (3)
  - INSOMNIA [None]
  - RESTLESSNESS [None]
  - CARDIAC FAILURE [None]
